FAERS Safety Report 6534556-X (Version None)
Quarter: 2010Q1

REPORT INFORMATION
  Report Type: 
  Country: None (occurrence: None)
  Receive Date: 20100112
  Receipt Date: 20100107
  Transmission Date: 20100710
  Serious: Yes (Life-Threatening)
  Sender: FDA-Public Use
  Company Number: US-JNJFOC-20100102000

PATIENT
  Age: 22 Year
  Sex: Male

DRUGS (5)
  1. ULTRAM [Suspect]
     Indication: JOINT INJURY
     Route: 065
  2. NSAID [Suspect]
     Indication: DRUG USE FOR UNKNOWN INDICATION
     Route: 065
  3. ANTICONVULSANT [Suspect]
     Indication: JOINT INJURY
     Route: 065
  4. MELOXICAM [Suspect]
     Indication: JOINT INJURY
     Route: 065
  5. THERAPEUTIC DRUG [Suspect]
     Indication: JOINT INJURY
     Route: 065

REACTIONS (4)
  - APNOEA [None]
  - DEPRESSED LEVEL OF CONSCIOUSNESS [None]
  - HYPERTENSION [None]
  - OVERDOSE [None]
